FAERS Safety Report 21688691 (Version 1)
Quarter: 2022Q4

REPORT INFORMATION
  Report Type: Spontaneous
  Country: US (occurrence: US)
  Receive Date: 20221206
  Receipt Date: 20221206
  Transmission Date: 20230113
  Serious: Yes (Hospitalization, Other)
  Sender: FDA-Public Use
  Company Number: US-GLAXOSMITHKLINE-US2022GSK180463

PATIENT

DRUGS (4)
  1. BUPROPION [Suspect]
     Active Substance: BUPROPION
     Indication: Depression
     Dosage: UNK
     Route: 064
  2. LAMOTRIGINE [Suspect]
     Active Substance: LAMOTRIGINE
     Indication: Bipolar disorder
     Dosage: UNK
     Route: 064
  3. 4-AMINO-3-PHENYLBUTYRIC ACID [Suspect]
     Active Substance: 4-AMINO-3-PHENYLBUTYRIC ACID
     Indication: Nutritional supplementation
     Dosage: 12 G
     Route: 064
  4. 4-AMINO-3-PHENYLBUTYRIC ACID [Suspect]
     Active Substance: 4-AMINO-3-PHENYLBUTYRIC ACID
     Dosage: 5 G
     Route: 064

REACTIONS (7)
  - Fever neonatal [Recovered/Resolved]
  - Neonatal sinus tachycardia [Recovered/Resolved]
  - High-pitched crying [Recovered/Resolved]
  - Poor quality sleep [Recovered/Resolved]
  - Hypertonia [Recovered/Resolved]
  - Tremor neonatal [Recovered/Resolved]
  - Foetal exposure during pregnancy [Unknown]
